FAERS Safety Report 6248558-4 (Version None)
Quarter: 2009Q2

REPORT INFORMATION
  Report Type: 
  Country: None (occurrence: None)
  Receive Date: 20090629
  Receipt Date: 20090619
  Transmission Date: 20091009
  Serious: Yes (Other)
  Sender: FDA-Public Use
  Company Number: US-TEVA-199300USA

PATIENT
  Sex: Female

DRUGS (3)
  1. PROPOFOL [Suspect]
     Indication: ANAESTHESIA
     Route: 042
     Dates: start: 20090602, end: 20090602
  2. NITROSTAT [Concomitant]
     Indication: CHEST PAIN
     Route: 048
  3. FLUTICASONE PROPIONATE [Concomitant]
     Indication: SEASONAL ALLERGY
     Route: 045

REACTIONS (7)
  - GAIT DISTURBANCE [None]
  - INJECTION SITE PAIN [None]
  - MUSCLE SPASMS [None]
  - PAIN [None]
  - RASH [None]
  - SKIN ODOUR ABNORMAL [None]
  - SUICIDAL IDEATION [None]
